FAERS Safety Report 20357521 (Version 1)
Quarter: 2022Q1

REPORT INFORMATION
  Report Type: Spontaneous
  Country: JP (occurrence: JP)
  Receive Date: 20220120
  Receipt Date: 20220120
  Transmission Date: 20220423
  Serious: Yes (Hospitalization)
  Sender: FDA-Public Use
  Company Number: JP-Eisai-202110725_DVG_P_1

PATIENT

DRUGS (2)
  1. DAYVIGO [Suspect]
     Active Substance: LEMBOREXANT
     Indication: Product used for unknown indication
     Dosage: DOSE AND FREQUENCY NOT PROVIDED
     Route: 048
  2. DAYVIGO [Suspect]
     Active Substance: LEMBOREXANT
     Dosage: OVERDOSE (DOSE AND FREQUENCY NOT PROVIDED)
     Route: 048

REACTIONS (2)
  - Restlessness [Unknown]
  - Overdose [Unknown]
